FAERS Safety Report 11888229 (Version 1)
Quarter: 2016Q1

REPORT INFORMATION
  Report Type: Report from Study
  Country: US (occurrence: US)
  Receive Date: 20160105
  Receipt Date: 20160105
  Transmission Date: 20160526
  Serious: Yes (Death)
  Sender: FDA-Public Use
  Company Number: US-ASTRAZENECA-2015SF31066

PATIENT
  Age: 33924 Day
  Sex: Male

DRUGS (1)
  1. IRESSA [Suspect]
     Active Substance: GEFITINIB
     Indication: NEOPLASM MALIGNANT
     Route: 048
     Dates: start: 20151211, end: 20151222

REACTIONS (1)
  - Death [Fatal]

NARRATIVE: CASE EVENT DATE: 20151222
